FAERS Safety Report 20183124 (Version 5)
Quarter: 2022Q1

REPORT INFORMATION
  Report Type: Spontaneous
  Country: US (occurrence: US)
  Receive Date: 20211214
  Receipt Date: 20220324
  Transmission Date: 20220423
  Serious: Yes (Other)
  Sender: FDA-Public Use
  Company Number: US-MALLINCKRODT-T202003492

PATIENT
  Sex: Female
  Weight: 132 kg

DRUGS (7)
  1. H.P. ACTHAR [Suspect]
     Active Substance: CORTICOTROPIN
     Indication: Nephrotic syndrome
     Dosage: 80 UNITS, TWICE WEEKLY
     Route: 058
     Dates: start: 202006, end: 202006
  2. H.P. ACTHAR [Suspect]
     Active Substance: CORTICOTROPIN
     Indication: Chronic kidney disease
     Dosage: 40 UNITS, 3 XWEEK
     Route: 065
     Dates: start: 20200630, end: 202007
  3. H.P. ACTHAR [Suspect]
     Active Substance: CORTICOTROPIN
     Dosage: 80 UNITS TWICE WEEKLY
     Route: 058
     Dates: start: 20200706, end: 202007
  4. H.P. ACTHAR [Suspect]
     Active Substance: CORTICOTROPIN
     Dosage: 80 UNITS TWICE WEEKLY
     Route: 058
     Dates: start: 202007, end: 2021
  5. H.P. ACTHAR [Suspect]
     Active Substance: CORTICOTROPIN
     Dosage: 80 UNITS ONCE A WEEK
     Route: 058
     Dates: start: 202103, end: 2021
  6. H.P. ACTHAR [Suspect]
     Active Substance: CORTICOTROPIN
     Dosage: UNK
     Route: 058
     Dates: start: 2021
  7. H.P. ACTHAR [Suspect]
     Active Substance: CORTICOTROPIN
     Dosage: UNK, FRIDAY, SATURDAY AND SUNDAY
     Route: 065

REACTIONS (29)
  - Blood glucose increased [Not Recovered/Not Resolved]
  - Weight increased [Unknown]
  - Bladder disorder [Unknown]
  - Bladder operation [Unknown]
  - Ocular hyperaemia [Unknown]
  - Sweat gland infection [Unknown]
  - Hepatomegaly [Unknown]
  - Fatigue [Not Recovered/Not Resolved]
  - Asthenia [Not Recovered/Not Resolved]
  - Tremor [Unknown]
  - Somnolence [Not Recovered/Not Resolved]
  - Sleep disorder [Unknown]
  - Anxiety [Unknown]
  - Protein total increased [Unknown]
  - Migraine [Not Recovered/Not Resolved]
  - Procedural pain [Unknown]
  - White blood cell count abnormal [Unknown]
  - Depression [Unknown]
  - Injection site pruritus [Recovered/Resolved]
  - Injection site rash [Recovered/Resolved]
  - Injection site discolouration [Not Recovered/Not Resolved]
  - Increased appetite [Unknown]
  - Acne [Not Recovered/Not Resolved]
  - Headache [Not Recovered/Not Resolved]
  - Injection site pain [Recovering/Resolving]
  - Malaise [Unknown]
  - Blood pressure increased [Unknown]
  - Intentional underdose [Unknown]
  - Product dose omission issue [Unknown]

NARRATIVE: CASE EVENT DATE: 20200101
